FAERS Safety Report 20769357 (Version 1)
Quarter: 2022Q2

REPORT INFORMATION
  Report Type: Spontaneous
  Country: ES (occurrence: None)
  Receive Date: 20220429
  Receipt Date: 20220429
  Transmission Date: 20220721
  Serious: Yes (Other)
  Sender: FDA-Public Use
  Company Number: 2021A495264

PATIENT
  Age: 51 Year
  Sex: Female

DRUGS (4)
  1. FULVESTRANT [Suspect]
     Active Substance: FULVESTRANT
     Indication: Breast cancer metastatic
     Dosage: 500, CYCLIC (28 DAYS)
     Route: 065
     Dates: start: 20180411
  2. PALBOCICLIB [Suspect]
     Active Substance: PALBOCICLIB
     Indication: Breast cancer metastatic
     Dosage: 125 MG, CYCLIC
     Route: 065
     Dates: start: 20180411
  3. PALBOCICLIB [Suspect]
     Active Substance: PALBOCICLIB
     Indication: Breast cancer metastatic
     Dosage: 100 MG, CYCLIC
     Route: 065
  4. PALBOCICLIB [Suspect]
     Active Substance: PALBOCICLIB
     Indication: Breast cancer metastatic
     Dosage: 75 MG, CYCLIC
     Route: 065
     Dates: start: 201901

REACTIONS (9)
  - Neutropenia [Unknown]
  - Neoplasm recurrence [Unknown]
  - Hand dermatitis [Recovered/Resolved]
  - Dyspepsia [Recovering/Resolving]
  - Reflux gastritis [Recovered/Resolved]
  - Urticaria [Recovered/Resolved]
  - Mucosal inflammation [Unknown]
  - Asthenia [Recovering/Resolving]
  - White blood cell count decreased [Unknown]

NARRATIVE: CASE EVENT DATE: 20180801
